FAERS Safety Report 13054923 (Version 3)
Quarter: 2018Q3

REPORT INFORMATION
  Report Type: Spontaneous
  Country: US (occurrence: US)
  Receive Date: 20161222
  Receipt Date: 20180726
  Transmission Date: 20181010
  Serious: Yes (Disabling)
  Sender: FDA-Public Use
  Company Number: US-PFIZER INC-2016558905

PATIENT
  Age: 51 Year
  Sex: Female
  Weight: 85.26 kg

DRUGS (18)
  1. HYDROCODONE BITARTRATE AND ACETAMINOPHEN [Concomitant]
     Active Substance: ACETAMINOPHEN\HYDROCODONE BITARTRATE
     Dosage: 1 DF, AS NEEDED (1 TABLET TID PRN AS NEEDED)
     Route: 048
     Dates: start: 20161117, end: 20161216
  2. INVOKANA [Concomitant]
     Active Substance: CANAGLIFLOZIN
     Dosage: 300 MG, 1X/DAY
     Route: 048
     Dates: start: 20161117
  3. LEVOTHYROXINE. [Concomitant]
     Active Substance: LEVOTHYROXINE
     Dosage: 112 UG, 1X/DAY
     Route: 048
  4. METFORMIN [Concomitant]
     Active Substance: METFORMIN HYDROCHLORIDE
     Indication: DIABETES MELLITUS
     Dosage: 1000 MG, 2X/DAY
     Route: 048
  5. SYNTHROID [Concomitant]
     Active Substance: LEVOTHYROXINE SODIUM
     Dosage: 112 UG, 1X/DAY
     Route: 048
  6. PANTOPRAZOLE [Concomitant]
     Active Substance: PANTOPRAZOLE
     Dosage: 40 MG, 1X/DAY
     Route: 048
  7. BENAZEPRIL [Concomitant]
     Active Substance: BENAZEPRIL HYDROCHLORIDE
     Indication: PROPHYLAXIS
     Dosage: 5 MG, 1X/DAY
     Route: 048
  8. BYETTA [Concomitant]
     Active Substance: EXENATIDE
     Dosage: 5 MCG/0.02 ML PER DOSE, 2X/DAY
     Route: 058
  9. VOLTAREN [Concomitant]
     Active Substance: DICLOFENAC SODIUM
     Dosage: UNK, 3X/DAY
     Route: 061
  10. DICLOFENAC SODIUM. [Concomitant]
     Active Substance: DICLOFENAC SODIUM
     Dosage: 50 MG, 2X/DAY
     Route: 048
     Dates: start: 20161117
  11. LEVEMIR [Concomitant]
     Active Substance: INSULIN DETEMIR
     Dosage: 100 UNIT/ML (3 ML) SUBCUTANEOUS INSULIN PEN, QAM
     Route: 058
  12. SYNTHROID [Concomitant]
     Active Substance: LEVOTHYROXINE SODIUM
     Indication: THYROID DISORDER
     Dosage: 175 UG, 2X/DAY
     Route: 048
  13. FLUTICASONE. [Concomitant]
     Active Substance: FLUTICASONE
     Dosage: 50 MCG/ACTUATION NASAL SPRAY TWICE DAILY
     Route: 045
     Dates: start: 20161117
  14. METFORMIN [Concomitant]
     Active Substance: METFORMIN HYDROCHLORIDE
     Dosage: 500 MG TAB 2 TABLET ORAL BID
     Route: 048
  15. LYRICA [Suspect]
     Active Substance: PREGABALIN
     Indication: NEUROPATHY PERIPHERAL
     Dosage: 450 MG DAILY (150 MG, ONE IN THE AM AND TWO AT HS)
     Route: 048
  16. LYRICA [Suspect]
     Active Substance: PREGABALIN
     Dosage: 150 MG, THREE TIMES A DAY (ONE IN THE MORNING, ONE AT NOON AND TILL BEFORE SHE GOES TO BED)
     Route: 048
  17. PREDNISONE. [Concomitant]
     Active Substance: PREDNISONE
     Dosage: 5 MG, 1X/DAY
     Route: 048
  18. HUMALOG [Concomitant]
     Active Substance: INSULIN LISPRO
     Dosage: 100 UNIT/ML SUBCUTANEOUS, 4 UNITS AC
     Route: 058
     Dates: start: 20161117

REACTIONS (3)
  - Neuropathy peripheral [Not Recovered/Not Resolved]
  - Condition aggravated [Not Recovered/Not Resolved]
  - Inflammation [Unknown]

NARRATIVE: CASE EVENT DATE: 20140207
